FAERS Safety Report 16936470 (Version 1)
Quarter: 2019Q4

REPORT INFORMATION
  Report Type: Spontaneous
  Country: US (occurrence: US)
  Receive Date: 20190827
  Receipt Date: 20190827
  Transmission Date: 20200122
  Serious: Yes (Life-Threatening, Hospitalization)
  Sender: FDA-Public Use
  Company Number: None

PATIENT
  Age: 58 Year
  Sex: Female
  Weight: 78.5 kg

DRUGS (2)
  1. PEMBROLIZUMAB 200MG [Suspect]
     Active Substance: PEMBROLIZUMAB
     Indication: ACUTE MYELOID LEUKAEMIA
     Route: 042
     Dates: start: 20190820
  2. AZACITIDINE 75MG/M2 [Suspect]
     Active Substance: AZACITIDINE
     Indication: ACUTE MYELOID LEUKAEMIA
     Route: 042
     Dates: start: 20190813, end: 20190819

REACTIONS (19)
  - Febrile neutropenia [None]
  - Pulmonary mass [None]
  - Hypotension [None]
  - Renal impairment [None]
  - Cough [None]
  - Rales [None]
  - Fungal infection [None]
  - Dyspnoea [None]
  - Tachypnoea [None]
  - Gingival bleeding [None]
  - Pneumonitis [None]
  - Viral infection [None]
  - Acute myeloid leukaemia [None]
  - Pulmonary oedema [None]
  - Rash [None]
  - Lung opacity [None]
  - Pneumonia [None]
  - Immune-mediated adverse reaction [None]
  - Urine output decreased [None]

NARRATIVE: CASE EVENT DATE: 20190825
